FAERS Safety Report 20024947 (Version 1)
Quarter: 2021Q4

REPORT INFORMATION
  Report Type: Spontaneous
  Country: US (occurrence: US)
  Receive Date: 20211102
  Receipt Date: 20211102
  Transmission Date: 20220303
  Serious: Yes (Hospitalization)
  Sender: FDA-Public Use
  Company Number: US-ELI_LILLY_AND_COMPANY-US202110010357

PATIENT
  Sex: Female

DRUGS (3)
  1. RETEVMO [Suspect]
     Active Substance: SELPERCATINIB
     Indication: Lung neoplasm malignant
     Dosage: UNK UNK, UNKNOWN
     Route: 048
  2. RETEVMO [Suspect]
     Active Substance: SELPERCATINIB
     Dosage: UNK UNK, UNKNOWN
     Route: 048
  3. OSIMERTINIB [Concomitant]
     Active Substance: OSIMERTINIB
     Indication: Lung neoplasm malignant

REACTIONS (1)
  - Diarrhoea [Recovered/Resolved]
